FAERS Safety Report 14102197 (Version 2)
Quarter: 2025Q1

REPORT INFORMATION
  Report Type: Spontaneous
  Country: US (occurrence: US)
  Receive Date: 20171018
  Receipt Date: 20250319
  Transmission Date: 20250408
  Serious: No
  Sender: MERCK SHARP & DOHME LLC
  Company Number: US-009507513-1709USA014030

PATIENT
  Age: 72 Year
  Sex: Male

DRUGS (5)
  1. BELSOMRA [Suspect]
     Active Substance: SUVOREXANT
     Indication: Insomnia
     Dosage: DOSE DESCRIPTION : TWO 10 MG TABLETS A DAY.?DAILY DOSE : 20 MILLIGRAM?CONCENTRATION: 10 MILLIGRAM
     Route: 048
     Dates: start: 2015
  2. BELSOMRA [Suspect]
     Active Substance: SUVOREXANT
     Indication: Insomnia
     Dosage: DOSE DESCRIPTION : 15 MG ONCE A DAY?DAILY DOSE : 15 MILLIGRAM
     Route: 048
     Dates: start: 2015
  3. KLONOPIN [Concomitant]
     Active Substance: CLONAZEPAM
  4. SYNTHROID [Concomitant]
     Active Substance: LEVOTHYROXINE SODIUM
  5. TESTOSTERONE [Concomitant]
     Active Substance: TESTOSTERONE

REACTIONS (10)
  - Amnesia [Not Recovered/Not Resolved]
  - Hangover [Not Recovered/Not Resolved]
  - Insomnia [Not Recovered/Not Resolved]
  - Therapeutic product effect decreased [Not Recovered/Not Resolved]
  - Dissociation [Not Recovered/Not Resolved]
  - Anxiety [Not Recovered/Not Resolved]
  - Fatigue [Not Recovered/Not Resolved]
  - Somnolence [Not Recovered/Not Resolved]
  - Wrong technique in product usage process [Unknown]
  - Intentional product use issue [Unknown]
